FAERS Safety Report 9902146 (Version 2)
Quarter: 2014Q1

REPORT INFORMATION
  Report Type: Spontaneous
  Country: DE (occurrence: DE)
  Receive Date: 20140217
  Receipt Date: 20140217
  Transmission Date: 20141002
  Serious: Yes (Hospitalization)
  Sender: FDA-Public Use
  Company Number: DE-UCBSA-108962

PATIENT
  Age: 55 Year
  Sex: Male
  Weight: 93 kg

DRUGS (7)
  1. KEPPRA [Suspect]
     Indication: PARTIAL SEIZURES
     Dosage: 4000 MG/DAY
     Route: 048
     Dates: start: 2007, end: 2010
  2. KEPPRA [Suspect]
     Indication: PARTIAL SEIZURES
     Dates: end: 201309
  3. TROBALT [Suspect]
     Indication: PARTIAL SEIZURES
     Route: 048
     Dates: start: 201106, end: 201309
  4. INSULIN [Concomitant]
     Indication: TYPE 1 DIABETES MELLITUS
     Dosage: APPLICATION VIA PUMP
     Route: 058
     Dates: start: 2001
  5. PERAMPANEL [Concomitant]
  6. ZONISAMIDE [Concomitant]
  7. ESLICARBAZEPINE [Concomitant]

REACTIONS (6)
  - Convulsion [Unknown]
  - Platelet count decreased [Unknown]
  - Dizziness [Unknown]
  - Skin discolouration [Recovering/Resolving]
  - White blood cells urine [Unknown]
  - Overdose [Recovered/Resolved]
